FAERS Safety Report 15095912 (Version 1)
Quarter: 2018Q3

REPORT INFORMATION
  Report Type: Spontaneous
  Country: US (occurrence: US)
  Receive Date: 20180702
  Receipt Date: 20180702
  Transmission Date: 20181010
  Serious: No
  Sender: FDA-Public Use
  Company Number: US-GLENMARK PHARMACEUTICALS-2017GMK028239

PATIENT

DRUGS (1)
  1. MOMETASONE FUROATE CREAM USP [Suspect]
     Active Substance: MOMETASONE FUROATE
     Indication: RASH
     Dosage: UNK, OD
     Route: 061
     Dates: start: 20170614

REACTIONS (5)
  - Product administered at inappropriate site [Unknown]
  - Application site irritation [Not Recovered/Not Resolved]
  - Product use in unapproved indication [Unknown]
  - Application site warmth [Not Recovered/Not Resolved]
  - Product physical issue [Unknown]

NARRATIVE: CASE EVENT DATE: 20170614
